FAERS Safety Report 25240476 (Version 1)
Quarter: 2025Q2

REPORT INFORMATION
  Report Type: Spontaneous
  Country: US (occurrence: None)
  Receive Date: 20250425
  Receipt Date: 20250425
  Transmission Date: 20250716
  Serious: Yes (Other)
  Sender: FDA-CTU
  Company Number: None

PATIENT
  Age: 59 Year
  Sex: Female
  Weight: 92.25 kg

DRUGS (13)
  1. HUMIRA [Suspect]
     Active Substance: ADALIMUMAB
     Indication: Psoriasis
     Route: 058
  2. HUMIRA [Suspect]
     Active Substance: ADALIMUMAB
     Indication: Psoriasis
  3. HERBALS\TURMERIC [Concomitant]
     Active Substance: HERBALS\TURMERIC
  4. MAGNESIUM [Concomitant]
     Active Substance: MAGNESIUM
  5. CLOBETASOL [Concomitant]
     Active Substance: CLOBETASOL
  6. ZINC SULFATE [Concomitant]
     Active Substance: ZINC SULFATE
  7. MUPIROCIN [Concomitant]
     Active Substance: MUPIROCIN
  8. Ciclopirox 1 % [Concomitant]
  9. OMEPRAZOLE [Concomitant]
     Active Substance: OMEPRAZOLE
  10. DIETARY SUPPLEMENT\HERBALS\MILK THISTLE [Concomitant]
     Active Substance: MILK THISTLE
  11. VITAMIN D2 [Concomitant]
     Active Substance: ERGOCALCIFEROL
  12. LEVOTHYROXINE [Concomitant]
     Active Substance: LEVOTHYROXINE
  13. Benzoyl Peroxide 10 % [Concomitant]

REACTIONS (4)
  - Injection site reaction [None]
  - Injection site erythema [None]
  - Injection site swelling [None]
  - Product distribution issue [None]

NARRATIVE: CASE EVENT DATE: 20250425
